FAERS Safety Report 9827928 (Version 1)
Quarter: 2014Q1

REPORT INFORMATION
  Report Type: Spontaneous
  Country: US (occurrence: US)
  Receive Date: 20140117
  Receipt Date: 20140117
  Transmission Date: 20141002
  Serious: No
  Sender: FDA-Public Use
  Company Number: US-TEVA-456827USA

PATIENT
  Sex: Female

DRUGS (1)
  1. QNASL [Suspect]

REACTIONS (5)
  - Burning sensation [Unknown]
  - Pain [Unknown]
  - Mucosal inflammation [Unknown]
  - Epistaxis [Unknown]
  - Device malfunction [Unknown]
